FAERS Safety Report 6074161-5 (Version None)
Quarter: 2009Q1

REPORT INFORMATION
  Report Type: 
  Country: None (occurrence: None)
  Receive Date: 20090211
  Receipt Date: 20080924
  Transmission Date: 20090719
  Serious: Yes (Death)
  Sender: FDA-Public Use
  Company Number: GB-ROCHE-612764

PATIENT
  Age: 64 Year

DRUGS (1)
  1. XELODA [Suspect]
     Indication: COLORECTAL CANCER
     Dosage: ADJUVEN THERAPY
     Route: 065

REACTIONS (2)
  - DEATH [None]
  - DIARRHOEA [None]
